FAERS Safety Report 8295743 (Version 2)
Quarter: 2012Q4

REPORT INFORMATION
  Report Type: 
  Country: US (occurrence: US)
  Receive Date: 20111216
  Receipt Date: 20121218
  Transmission Date: 20130627
  Serious: No
  Sender: FDA-Public Use
  Company Number: US-BRISTOL-MYERS SQUIBB COMPANY-15968647

PATIENT
  Age: 26 Year
  Sex: Female
  Weight: 113 kg

DRUGS (3)
  1. ABILIFY [Suspect]
     Indication: DEPRESSION
     Dosage: 30mg-2002-2006
     Dates: start: 2001
  2. ABILIFY [Suspect]
     Indication: BIPOLAR DISORDER
     Dosage: 30mg-2002-2006
     Dates: start: 2001
  3. PRENATAL VITAMIN [Concomitant]

REACTIONS (4)
  - Pregnancy [Recovered/Resolved]
  - Normal newborn [Unknown]
  - Hallucination [Recovered/Resolved]
  - Weight increased [Unknown]
